FAERS Safety Report 23415657 (Version 1)
Quarter: 2024Q1

REPORT INFORMATION
  Report Type: Spontaneous
  Country: CZ (occurrence: CZ)
  Receive Date: 20240118
  Receipt Date: 20240118
  Transmission Date: 20240409
  Serious: Yes (Other)
  Sender: FDA-Public Use
  Company Number: None

PATIENT
  Age: 59 Year
  Sex: Female
  Weight: 66 kg

DRUGS (9)
  1. CAPECITABINE [Suspect]
     Active Substance: CAPECITABINE
     Indication: Colorectal cancer
     Dosage: 2-0-2 (DOSE 1800MG 2X TIMES A DAY, FOR 14 DAYS
     Dates: start: 20231102, end: 20231115
  2. OXALIPLATIN [Suspect]
     Active Substance: OXALIPLATIN
     Indication: Colorectal cancer
     Dosage: DOSE 226MG (130MG/M2), ADMINISTRATED ONCE
     Dates: start: 20231102, end: 20231102
  3. DEXAMETHASONE [Concomitant]
     Active Substance: DEXAMETHASONE
     Indication: Prophylaxis of nausea and vomiting
     Dosage: CHEMOTHERAPY ANTIEMETIC PROPHYLAXIS 2-0-0 ON SECOND AND THIRD DAY OF CHEMOTHERAPHY (8MG)
     Dates: start: 20231103, end: 20231104
  4. BISULEPIN [Concomitant]
     Active Substance: BISULEPIN
     Indication: Allergy prophylaxis
     Dates: start: 20231102, end: 20231102
  5. GRANISETRON [Concomitant]
     Active Substance: GRANISETRON
     Indication: Prophylaxis of nausea and vomiting
     Dates: start: 20231102, end: 20231102
  6. CONTROLOC [Concomitant]
     Active Substance: PANTOPRAZOLE SODIUM
     Indication: Chemotherapy side effect prophylaxis
     Dates: start: 20231102, end: 20231102
  7. OMEPRAZOLE [Concomitant]
     Active Substance: OMEPRAZOLE
     Indication: Prophylaxis
     Dates: start: 20231103, end: 20231104
  8. DEXAMED [Concomitant]
     Indication: Antiemetic supportive care
     Dates: start: 20231102, end: 20231102
  9. CAPECITABINE [Suspect]
     Active Substance: CAPECITABINE
     Indication: Colorectal cancer
     Dosage: 2-0-2 (DOSE 1800MG 2X TIMES A DAY, FOR 14 DAYS
     Dates: start: 20231102, end: 20231115

REACTIONS (3)
  - Liver disorder [Not Recovered/Not Resolved]
  - Skin reaction [Unknown]
  - Gastrointestinal disorder [Unknown]

NARRATIVE: CASE EVENT DATE: 20231101
